FAERS Safety Report 6781966-1 (Version None)
Quarter: 2010Q2

REPORT INFORMATION
  Report Type: 
  Country: None (occurrence: None)
  Receive Date: 20100621
  Receipt Date: 20100610
  Transmission Date: 20101027
  Serious: Yes (Other)
  Sender: FDA-Public Use
  Company Number: JP-PFIZER INC-2010073017

PATIENT
  Age: 38 Year
  Sex: Male

DRUGS (1)
  1. ZITHROMAX [Suspect]
     Indication: ABSCESS
     Dosage: 250 MG, 2X/DAY
     Route: 048
     Dates: start: 20100609, end: 20100610

REACTIONS (1)
  - CHROMATURIA [None]
